FAERS Safety Report 5197249-X (Version None)
Quarter: 2007Q1

REPORT INFORMATION
  Report Type: 
  Country: None (occurrence: None)
  Receive Date: 20070103
  Receipt Date: 20061228
  Transmission Date: 20070707
  Serious: Yes (Life-Threatening, Hospitalization, Disabling, Other)
  Sender: FDA-Public Use
  Company Number: US-MERCK-0612USA04183

PATIENT
  Age: 80 Year
  Sex: Female

DRUGS (8)
  1. FOSAMAX [Suspect]
     Route: 048
     Dates: end: 20060101
  2. FOSAMAX [Suspect]
     Route: 048
     Dates: start: 20061201
  3. COUMADIN [Concomitant]
     Route: 065
  4. VITAMINS (UNSPECIFIED) [Concomitant]
     Route: 065
  5. CALCIUM (UNSPECIFIED) [Concomitant]
     Route: 065
  6. PAXIL [Concomitant]
     Route: 065
  7. ASPIRIN [Concomitant]
     Route: 065
  8. PLAVIX [Concomitant]
     Route: 065

REACTIONS (1)
  - PEPTIC ULCER [None]
